FAERS Safety Report 4928448-7 (Version None)
Quarter: 2006Q1

REPORT INFORMATION
  Report Type: 
  Country: None (occurrence: None)
  Receive Date: 20060228
  Receipt Date: 20050829
  Transmission Date: 20060701
  Serious: Yes (Hospitalization)
  Sender: FDA-Public Use
  Company Number: US-MERCK-0508USA05103

PATIENT
  Age: 48 Year
  Sex: Male
  Weight: 100 kg

DRUGS (3)
  1. VIOXX [Suspect]
     Indication: ARTHRITIS
     Route: 048
     Dates: start: 20030701, end: 20040801
  2. VIOXX [Suspect]
     Indication: PAIN
     Route: 048
     Dates: start: 20030701, end: 20040801
  3. IBUPROFEN [Concomitant]
     Route: 065

REACTIONS (2)
  - ARTERIAL OCCLUSIVE DISEASE [None]
  - CHEST PAIN [None]
